FAERS Safety Report 18094118 (Version 2)
Quarter: 2020Q3

REPORT INFORMATION
  Report Type: Spontaneous
  Country: US (occurrence: US)
  Receive Date: 20200730
  Receipt Date: 20200904
  Transmission Date: 20201103
  Serious: No
  Sender: FDA-Public Use
  Company Number: US-BIOGEN-2020BI00901557

PATIENT
  Age: 23 Year
  Sex: Female

DRUGS (1)
  1. SPINRAZA [Suspect]
     Active Substance: NUSINERSEN
     Indication: SPINAL MUSCULAR ATROPHY
     Route: 065
     Dates: start: 20180914

REACTIONS (6)
  - Musculoskeletal procedural complication [Unknown]
  - Post procedural complication [Unknown]
  - Headache [Unknown]
  - Post lumbar puncture syndrome [Unknown]
  - Sciatic nerve injury [Unknown]
  - Coccydynia [Unknown]

NARRATIVE: CASE EVENT DATE: 201811
